FAERS Safety Report 10573749 (Version 1)
Quarter: 2014Q4

REPORT INFORMATION
  Report Type: Spontaneous
  Country: US (occurrence: US)
  Receive Date: 20141110
  Receipt Date: 20141110
  Transmission Date: 20150529
  Serious: No
  Sender: FDA-Public Use
  Company Number: US-BAYER-2014-163890

PATIENT
  Age: 59 Year
  Sex: Female

DRUGS (2)
  1. ANGELIQ [Suspect]
     Active Substance: DROSPIRENONE\ESTRADIOL
     Indication: HOT FLUSH
     Dosage: 0.25/0.5
     Dates: start: 201405
  2. ANGELIQ [Suspect]
     Active Substance: DROSPIRENONE\ESTRADIOL
     Indication: HOT FLUSH
     Dosage: 0.5/1
     Dates: end: 201405

REACTIONS (2)
  - Hot flush [Not Recovered/Not Resolved]
  - Drug ineffective [Not Recovered/Not Resolved]

NARRATIVE: CASE EVENT DATE: 20141101
